FAERS Safety Report 7380488-7 (Version None)
Quarter: 2011Q1

REPORT INFORMATION
  Report Type: 
  Country: None (occurrence: None)
  Receive Date: 20110329
  Receipt Date: 20100304
  Transmission Date: 20110831
  Serious: Yes (Death, Other)
  Sender: FDA-Public Use
  Company Number: US-BAYER-201015580NA

PATIENT
  Sex: Female

DRUGS (1)
  1. TRASYLOL [Suspect]
     Indication: CARDIAC OPERATION
     Dates: start: 20001124

REACTIONS (7)
  - CEREBROVASCULAR ACCIDENT [None]
  - RENAL FAILURE [None]
  - RENAL FAILURE ACUTE [None]
  - DEATH [None]
  - MYOCARDIAL INFARCTION [None]
  - PAIN [None]
  - INJURY [None]
